FAERS Safety Report 7284460-7 (Version None)
Quarter: 2011Q1

REPORT INFORMATION
  Report Type: 
  Country: None (occurrence: None)
  Receive Date: 20110209
  Receipt Date: 20110203
  Transmission Date: 20110831
  Serious: Yes (Congenital Anomaly, Other)
  Sender: FDA-Public Use
  Company Number: US-PFIZER INC-2008049828

PATIENT
  Sex: Male

DRUGS (6)
  1. PROZAC [Concomitant]
     Dosage: UNK
     Dates: start: 20031101, end: 20040101
  2. ZOLOFT [Suspect]
     Indication: DEPRESSION
     Dosage: UNK
     Route: 064
     Dates: start: 20030313
  3. PRENATAL VITAMINS [Concomitant]
     Dosage: UNK
  4. IRON [Concomitant]
     Dosage: UNK
  5. GLYBURIDE [Concomitant]
     Dosage: UNK
  6. KLONOPIN [Concomitant]
     Indication: ANXIETY
     Dosage: ALMOST EVERY NIGHT TO SLEEP

REACTIONS (8)
  - DRUG EXPOSURE DURING PREGNANCY [None]
  - VENTRICULAR SEPTAL DEFECT [None]
  - CONGENITAL PULMONARY VALVE DISORDER [None]
  - ATRIAL SEPTAL DEFECT [None]
  - CONGENITAL TRICUSPID VALVE ATRESIA [None]
  - VENTRICULAR HYPOPLASIA [None]
  - PULMONARY VALVE STENOSIS [None]
  - PULMONARY HYPERTENSION [None]
